FAERS Safety Report 13075212 (Version 1)
Quarter: 2016Q4

REPORT INFORMATION
  Report Type: Spontaneous
  Country: US (occurrence: US)
  Receive Date: 20161230
  Receipt Date: 20161230
  Transmission Date: 20170207
  Serious: No
  Sender: FDA-Public Use
  Company Number: US-BAYER-2016-247254

PATIENT
  Sex: Female

DRUGS (12)
  1. PREMARIN [Concomitant]
     Active Substance: ESTROGENS, CONJUGATED
     Dosage: 25 MG, OW
  2. LESCOL XL [Concomitant]
     Active Substance: FLUVASTATIN SODIUM
     Dosage: 80 MG, HS
     Route: 048
  3. MOBIC [Concomitant]
     Active Substance: MELOXICAM
     Indication: PAIN IN EXTREMITY
     Dosage: 15 MG, PRN
     Route: 048
  4. VITAMIN D [Concomitant]
     Active Substance: CHOLECALCIFEROL
     Dosage: 5000 U, OM
     Route: 048
  5. BAYER ASPIRIN [Suspect]
     Active Substance: ASPIRIN
     Dosage: UNK
  6. ALEVE [Suspect]
     Active Substance: NAPROXEN SODIUM
     Dosage: UNK
  7. CLONAZEPAM. [Concomitant]
     Active Substance: CLONAZEPAM
     Dosage: 0.5 MG, HS
     Route: 048
  8. LYRICA [Concomitant]
     Active Substance: PREGABALIN
     Indication: PAIN
     Dosage: 2 DF, HS
  9. LYRICA [Concomitant]
     Active Substance: PREGABALIN
     Indication: PAIN
     Dosage: 1 DF, BID EACH AM + MIDDAY
  10. FLEXERIL [Concomitant]
     Active Substance: CYCLOBENZAPRINE HYDROCHLORIDE
     Indication: PAIN IN EXTREMITY
     Dosage: 1 DF, HS
     Route: 048
  11. MIRABEGRON [Concomitant]
     Active Substance: MIRABEGRON
     Indication: HYPERTONIC BLADDER
     Dosage: 25 MG, QD
     Route: 048
  12. TRAMADOL. [Concomitant]
     Active Substance: TRAMADOL
     Indication: PAIN
     Dosage: 1-2 DF EVERY 6 HOURS, PRN

REACTIONS (5)
  - Vomiting [None]
  - Urticaria [None]
  - Rash [None]
  - Drug hypersensitivity [Unknown]
  - Nausea [None]
